FAERS Safety Report 4285153-0 (Version None)
Quarter: 2004Q1

REPORT INFORMATION
  Report Type: 
  Country: None (occurrence: None)
  Receive Date: 20040202
  Receipt Date: 20040126
  Transmission Date: 20041129
  Serious: Yes (Life-Threatening, Hospitalization, Disabling)
  Sender: FDA-Public Use
  Company Number: 430036M03USA

PATIENT
  Age: 57 Year
  Sex: Female
  Weight: 56.2 kg

DRUGS (1)
  1. NOVANTRONE [Suspect]
     Indication: MULTIPLE SCLEROSIS
     Dosage: 12 MG/M2, 1 IN 3 MONTHS, INTRAVENOUS
     Route: 042
     Dates: start: 20020801, end: 20031204

REACTIONS (7)
  - CARDIAC FAILURE CONGESTIVE [None]
  - CARDIOMYOPATHY [None]
  - CYANOSIS [None]
  - EJECTION FRACTION DECREASED [None]
  - HYPOTENSION [None]
  - PULMONARY OEDEMA [None]
  - SINUS DISORDER [None]
